FAERS Safety Report 18000990 (Version 3)
Quarter: 2020Q3

REPORT INFORMATION
  Report Type: Other
  Country: GB (occurrence: GB)
  Receive Date: 20200709
  Receipt Date: 20200801
  Transmission Date: 20201103
  Serious: Yes (Death, Congenital Anomaly, Other)
  Sender: FDA-Public Use
  Company Number: GB-MACLEODS PHARMACEUTICALS US LTD-MAC2020027087

PATIENT

DRUGS (3)
  1. DIDANOSINE. [Suspect]
     Active Substance: DIDANOSINE
     Indication: PRODUCT USED FOR UNKNOWN INDICATION
     Dosage: 400 MILLIGRAM, QD ONE COURSE OF DIDANOSINE DURING UNKNOWN TRIMESTER OF PREGNANCY
     Route: 064
     Dates: start: 20040122
  2. NEVIRAPINE 400 MG [Suspect]
     Active Substance: NEVIRAPINE
     Indication: PRODUCT USED FOR UNKNOWN INDICATION
     Dosage: 400 MILLIGRAM, QD ONE COURSE DURING UNKNOWN TRIMESTER OF PREGNANCY
     Route: 064
     Dates: start: 20000122
  3. NORVIR [Suspect]
     Active Substance: RITONAVIR
     Indication: PRODUCT USED FOR UNKNOWN INDICATION
     Dosage: 500 MILLIGRAM, QD  ONE COURSE DURING UNKNOWN TRIMESTER OF PREGNANCY
     Route: 064
     Dates: start: 20000122

REACTIONS (3)
  - Pulmonary hypoplasia [Fatal]
  - Congenital central nervous system anomaly [Fatal]
  - Foetal exposure during pregnancy [Unknown]
